FAERS Safety Report 13478838 (Version 2)
Quarter: 2017Q2

REPORT INFORMATION
  Report Type: Spontaneous
  Country: US (occurrence: US)
  Receive Date: 20170425
  Receipt Date: 20170523
  Transmission Date: 20170830
  Serious: No
  Sender: FDA-Public Use
  Company Number: US-TEVA-758575ACC

PATIENT
  Age: 25 Year
  Sex: Female
  Weight: 70.37 kg

DRUGS (1)
  1. PARAGARD T 380A [Suspect]
     Active Substance: COPPER
     Indication: CONTRACEPTION
     Dates: start: 20170221, end: 20170405

REACTIONS (2)
  - Complication associated with device [Recovered/Resolved with Sequelae]
  - Device expulsion [Recovered/Resolved]

NARRATIVE: CASE EVENT DATE: 201702
